FAERS Safety Report 9431338 (Version 1)
Quarter: 2013Q3

REPORT INFORMATION
  Report Type: Spontaneous
  Country: IT (occurrence: IT)
  Receive Date: 20130730
  Receipt Date: 20130730
  Transmission Date: 20140515
  Serious: Yes (Death)
  Sender: FDA-Public Use
  Company Number: IT-BAXTER-2013BAX029619

PATIENT
  Age: 80 Year
  Sex: Male

DRUGS (8)
  1. METRONIDAZOLO BAXTER 0,5% [Suspect]
     Indication: BRAIN ABSCESS
     Route: 042
     Dates: start: 20130605, end: 20130707
  2. MEROPENEM [Suspect]
     Indication: BRAIN ABSCESS
     Route: 042
     Dates: start: 20130605, end: 20130707
  3. DEXAMETHASONE [Concomitant]
     Indication: PRODUCT USED FOR UNKNOWN INDICATION
     Route: 065
  4. OMEPRAZOLE [Concomitant]
     Indication: PRODUCT USED FOR UNKNOWN INDICATION
     Route: 065
  5. ENALAPRIL [Concomitant]
     Indication: PRODUCT USED FOR UNKNOWN INDICATION
     Route: 065
  6. LEVOTHYROXINE SODIUM [Concomitant]
     Indication: PRODUCT USED FOR UNKNOWN INDICATION
     Route: 065
  7. PARNAPARIN SODIUM [Concomitant]
     Indication: PRODUCT USED FOR UNKNOWN INDICATION
     Route: 065
  8. DUTASTERIDE [Concomitant]
     Indication: PRODUCT USED FOR UNKNOWN INDICATION
     Route: 065

REACTIONS (2)
  - Agranulocytosis [Fatal]
  - Thrombocytopenia [Fatal]
